FAERS Safety Report 17159056 (Version 1)
Quarter: 2019Q4

REPORT INFORMATION
  Report Type: Report from Study
  Country: DE (occurrence: DE)
  Receive Date: 20191216
  Receipt Date: 20191216
  Transmission Date: 20200122
  Serious: Yes (Hospitalization)
  Sender: FDA-Public Use
  Company Number: DE-JNJFOC-20191205148

PATIENT
  Age: 35 Year
  Sex: Male

DRUGS (2)
  1. NOVALGIN (METAMIZOLE SODIUM) [Suspect]
     Active Substance: METAMIZOLE SODIUM
     Indication: BACK PAIN
     Route: 065
  2. GUSELKUMAB [Suspect]
     Active Substance: GUSELKUMAB
     Indication: PSORIASIS
     Dosage: FREQUENCY W0, W4, AND THEN ONCE EVERY 8 WEEKS
     Route: 058
     Dates: start: 20191001

REACTIONS (2)
  - Depressed mood [Not Recovered/Not Resolved]
  - Hypersensitivity [Recovered/Resolved]

NARRATIVE: CASE EVENT DATE: 201911
